FAERS Safety Report 7478036-6 (Version None)
Quarter: 2011Q2

REPORT INFORMATION
  Report Type: 
  Country: None (occurrence: None)
  Receive Date: 20110511
  Receipt Date: 20110511
  Transmission Date: 20111010
  Serious: Yes (Hospitalization)
  Sender: FDA-Public Use
  Company Number: None

PATIENT
  Sex: Female
  Weight: 95.2554 kg

DRUGS (1)
  1. PACLITAXEL [Suspect]
     Dosage: 359 MG IV
     Route: 042

REACTIONS (8)
  - INADEQUATE ANALGESIA [None]
  - BACK PAIN [None]
  - ABDOMINAL PAIN LOWER [None]
  - PAIN IN EXTREMITY [None]
  - DRUG EFFECT INCREASED [None]
  - INCORRECT DOSE ADMINISTERED [None]
  - PAIN [None]
  - TOXICITY TO VARIOUS AGENTS [None]
